FAERS Safety Report 16435892 (Version 1)
Quarter: 2019Q2

REPORT INFORMATION
  Report Type: Spontaneous
  Country: PL (occurrence: PL)
  Receive Date: 20190614
  Receipt Date: 20190614
  Transmission Date: 20190711
  Serious: Yes (Other)
  Sender: FDA-Public Use
  Company Number: PL-TEVA-2019-PL-1064595

PATIENT
  Age: 45 Year
  Sex: Male
  Weight: 82 kg

DRUGS (2)
  1. VINCRISTIN TEVA [Suspect]
     Active Substance: VINCRISTINE
     Indication: BRAIN NEOPLASM MALIGNANT
     Dosage: THERAPY ONGOING
     Dates: start: 20190102
  2. NATULAN [Suspect]
     Active Substance: PROCARBAZINE HYDROCHLORIDE
     Indication: BRAIN NEOPLASM MALIGNANT
     Dosage: THERAPY ONGOING
     Route: 048
     Dates: start: 20190102

REACTIONS (2)
  - Neutropenia [Recovering/Resolving]
  - Asthenia [Recovering/Resolving]

NARRATIVE: CASE EVENT DATE: 20190123
